FAERS Safety Report 5289819-5 (Version None)
Quarter: 2007Q2

REPORT INFORMATION
  Report Type: 
  Country: None (occurrence: None)
  Receive Date: 20070406
  Receipt Date: 20070329
  Transmission Date: 20071010
  Serious: Yes (Disabling)
  Sender: FDA-Public Use
  Company Number: NO-SANOFI-SYNTHELABO-A01200703363

PATIENT
  Sex: Male

DRUGS (3)
  1. LEUCOVORIN CALCIUM [Concomitant]
     Indication: COLON CANCER STAGE III
     Dosage: UNK
     Route: 041
     Dates: start: 20060320, end: 20060628
  2. FLUOROURACIL [Concomitant]
     Indication: COLON CANCER STAGE III
     Dosage: UNK
     Route: 041
     Dates: start: 20060320, end: 20060628
  3. ELOXATIN [Suspect]
     Indication: COLON CANCER STAGE III
     Dosage: UNK
     Route: 041
     Dates: start: 20060320, end: 20060320

REACTIONS (4)
  - NEUROPATHY PERIPHERAL [None]
  - PARAESTHESIA [None]
  - POLYNEUROPATHY [None]
  - STRIDOR [None]
